FAERS Safety Report 21304198 (Version 1)
Quarter: 2022Q3

REPORT INFORMATION
  Report Type: Spontaneous
  Country: US (occurrence: None)
  Receive Date: 20220907
  Receipt Date: 20220907
  Transmission Date: 20221027
  Serious: No
  Sender: FDA-Public Use
  Company Number: US-ARIS GLOBAL-202107-1137

PATIENT
  Sex: Male

DRUGS (2)
  1. OXERVATE [Suspect]
     Active Substance: CENEGERMIN-BKBJ
     Indication: Neurotrophic keratopathy
     Route: 047
     Dates: start: 20210706
  2. SERUM TEARS [Concomitant]

REACTIONS (4)
  - Wrong technique in product usage process [Unknown]
  - Eye irritation [Unknown]
  - Vision blurred [Unknown]
  - Anosmia [Unknown]
